FAERS Safety Report 15416002 (Version 1)
Quarter: 2018Q3

REPORT INFORMATION
  Report Type: Report from Study
  Country: US (occurrence: US)
  Receive Date: 20180923
  Receipt Date: 20180923
  Transmission Date: 20181010
  Serious: No
  Sender: FDA-Public Use
  Company Number: PHEH2018US039458

PATIENT
  Sex: Female
  Weight: 68.4 kg

DRUGS (4)
  1. COSENTYX [Suspect]
     Active Substance: SECUKINUMAB
     Indication: PSORIATIC ARTHROPATHY
  2. COSENTYX [Suspect]
     Active Substance: SECUKINUMAB
     Indication: PSORIASIS
     Dosage: 300 MG, QMO
     Route: 058
     Dates: start: 201805
  3. COSENTYX [Suspect]
     Active Substance: SECUKINUMAB
     Indication: ARTHROPATHY
  4. COSENTYX [Suspect]
     Active Substance: SECUKINUMAB
     Indication: OSTEOPOROSIS

REACTIONS (3)
  - Product use in unapproved indication [Unknown]
  - Aphthous ulcer [Unknown]
  - Candida infection [Unknown]
